FAERS Safety Report 8008904-8 (Version None)
Quarter: 2011Q4

REPORT INFORMATION
  Report Type: 
  Country: None (occurrence: None)
  Receive Date: 20111221
  Receipt Date: 20111212
  Transmission Date: 20120403
  Serious: Yes (Other)
  Sender: FDA-Public Use
  Company Number: 2011P1014842

PATIENT

DRUGS (1)
  1. PHENOBARBITAL (NO PREF. NAME) [Suspect]
     Indication: EPILEPSY
     Dosage: 200 MG;QD;TRPL
     Route: 064

REACTIONS (4)
  - SMALL FOR DATES BABY [None]
  - NEONATAL RESPIRATORY DEPRESSION [None]
  - CARDIAC DISORDER [None]
  - MATERNAL DRUGS AFFECTING FOETUS [None]
